FAERS Safety Report 8217685-4 (Version None)
Quarter: 2012Q1

REPORT INFORMATION
  Report Type: 
  Country: None (occurrence: None)
  Receive Date: 20120314
  Receipt Date: 20120229
  Transmission Date: 20120608
  Serious: Yes (Hospitalization)
  Sender: FDA-Public Use
  Company Number: B0784496A

PATIENT
  Sex: Female

DRUGS (4)
  1. DIGOXIN [Suspect]
     Indication: INTENTIONAL OVERDOSE
     Dosage: .125 MG/ORAL
     Route: 048
     Dates: start: 20120115, end: 20120115
  2. MIDAZOLAM [Suspect]
     Indication: INTENTIONAL OVERDOSE
     Dosage: ORAL
     Route: 048
     Dates: start: 20120115, end: 20120115
  3. AMITRIPTYLINE HYDROCHLORIDE [Concomitant]
  4. DELORAZEPAM [Concomitant]

REACTIONS (3)
  - VOMITING [None]
  - INTENTIONAL OVERDOSE [None]
  - SUICIDE ATTEMPT [None]
